FAERS Safety Report 11786957 (Version 2)
Quarter: 2016Q1

REPORT INFORMATION
  Report Type: Spontaneous
  Country: PT (occurrence: PT)
  Receive Date: 20151130
  Receipt Date: 20160121
  Transmission Date: 20160525
  Serious: No
  Sender: FDA-Public Use
  Company Number: PT-JNJFOC-20151110019

PATIENT
  Age: 4 Year
  Sex: Male

DRUGS (4)
  1. STELARA [Suspect]
     Active Substance: USTEKINUMAB
     Indication: ARTHROPATHY
     Route: 058
     Dates: start: 20151010
  2. STELARA [Suspect]
     Active Substance: USTEKINUMAB
     Indication: ARTHROPATHY
     Route: 058
     Dates: end: 201510
  3. STELARA [Suspect]
     Active Substance: USTEKINUMAB
     Indication: ERYTHRODERMIC PSORIASIS
     Route: 058
     Dates: start: 20151010
  4. STELARA [Suspect]
     Active Substance: USTEKINUMAB
     Indication: ERYTHRODERMIC PSORIASIS
     Route: 058
     Dates: end: 201510

REACTIONS (5)
  - Erythrodermic psoriasis [Unknown]
  - Drug ineffective for unapproved indication [Unknown]
  - Off label use [Unknown]
  - Arthropathy [Unknown]
  - Product use issue [Unknown]
